FAERS Safety Report 7298510-5 (Version None)
Quarter: 2011Q1

REPORT INFORMATION
  Report Type: 
  Country: None (occurrence: None)
  Receive Date: 20110217
  Receipt Date: 20110215
  Transmission Date: 20110831
  Serious: Yes (Hospitalization, Other)
  Sender: FDA-Public Use
  Company Number: US-PFIZER INC-2011033558

PATIENT
  Sex: Female
  Weight: 88.4 kg

DRUGS (1)
  1. DILANTIN-125 [Suspect]
     Indication: CONVULSION
     Dosage: 500 MG, 1X/DAY
     Dates: start: 19861207

REACTIONS (2)
  - DIZZINESS [None]
  - BRAIN NEOPLASM [None]
